FAERS Safety Report 23521068 (Version 1)
Quarter: 2024Q1

REPORT INFORMATION
  Report Type: Spontaneous
  Country: US (occurrence: US)
  Receive Date: 20240214
  Receipt Date: 20240214
  Transmission Date: 20240409
  Serious: No
  Sender: FDA-Public Use
  Company Number: US-MACLEODS PHARMACEUTICALS US LTD-MAC2024045695

PATIENT

DRUGS (1)
  1. IRBESARTAN [Suspect]
     Active Substance: IRBESARTAN
     Indication: Blood pressure increased
     Dosage: 150 MILLIGRAM (NDC NUMBER: 33342-048-10)
     Route: 065

REACTIONS (2)
  - Blood pressure increased [Unknown]
  - Product dispensing error [Unknown]
